FAERS Safety Report 6316896-2 (Version None)
Quarter: 2009Q3

REPORT INFORMATION
  Report Type: 
  Country: None (occurrence: None)
  Receive Date: 20090820
  Receipt Date: 20090813
  Transmission Date: 20100115
  Serious: Yes (Hospitalization, Other)
  Sender: FDA-Public Use
  Company Number: US-ELI_LILLY_AND_COMPANY-US200908002949

PATIENT
  Sex: Male
  Weight: 97.506 kg

DRUGS (6)
  1. BYETTA [Suspect]
     Indication: TYPE 2 DIABETES MELLITUS
     Dosage: 5 UG, 2/D
     Route: 058
     Dates: start: 20080101, end: 20080101
  2. BYETTA [Suspect]
     Dosage: 10 UG, 2/D
     Route: 058
     Dates: start: 20080101
  3. METFORMIN [Concomitant]
     Dosage: UNK, 2/D
  4. AMARYL [Concomitant]
     Dosage: UNK, 2/D
  5. ANTIHYPERTENSIVES [Concomitant]
     Dosage: UNK, UNKNOWN
  6. CHOLESTEROL- AND TRIGLYCERIDE REDUCERS [Concomitant]
     Dosage: UNK, UNKNOWN

REACTIONS (2)
  - ATRIOVENTRICULAR BLOCK [None]
  - DYSPNOEA [None]
